FAERS Safety Report 4807190-7 (Version None)
Quarter: 2005Q4

REPORT INFORMATION
  Report Type: 
  Country: None (occurrence: None)
  Receive Date: 20051024
  Receipt Date: 20051013
  Transmission Date: 20060501
  Serious: Yes (Other)
  Sender: FDA-Public Use
  Company Number: PHBS2005JP15298

PATIENT

DRUGS (2)
  1. LUDIOMIL [Suspect]
     Route: 048
  2. HMG COA REDUCTASE INHIBITORS [Concomitant]

REACTIONS (1)
  - RHABDOMYOLYSIS [None]
